FAERS Safety Report 19444830 (Version 1)
Quarter: 2021Q2

REPORT INFORMATION
  Report Type: Spontaneous
  Country: CL (occurrence: CL)
  Receive Date: 20210621
  Receipt Date: 20210621
  Transmission Date: 20210717
  Serious: Yes (Other)
  Sender: FDA-Public Use
  Company Number: CL-BIOMARINAP-CL-2021-135997

PATIENT
  Sex: Male

DRUGS (1)
  1. BRINEURA [Suspect]
     Active Substance: CERLIPONASE ALFA
     Indication: NEURONAL CEROID LIPOFUSCINOSIS
     Route: 065

REACTIONS (6)
  - Neurogenic bladder [Unknown]
  - Choking sensation [Unknown]
  - Petit mal epilepsy [Unknown]
  - Pyrexia [Unknown]
  - Dysuria [Unknown]
  - Hypokinesia [Unknown]
